FAERS Safety Report 17248192 (Version 5)
Quarter: 2020Q3

REPORT INFORMATION
  Report Type: Spontaneous
  Country: CN (occurrence: CN)
  Receive Date: 20200108
  Receipt Date: 20200615
  Transmission Date: 20201105
  Serious: Yes (Death)
  Sender: FDA-Public Use
  Company Number: CN-CELGENEUS-CHN-20200102260

PATIENT
  Age: 70 Year
  Sex: Male
  Weight: 50 kg

DRUGS (18)
  1. CARBOPLATIN. [Suspect]
     Active Substance: CARBOPLATIN
     Dosage: 375 MILLIGRAM
     Route: 041
     Dates: start: 20191219, end: 20191219
  2. HEPARIN SODIUM. [Concomitant]
     Active Substance: HEPARIN SODIUM
     Indication: THROMBOSIS PROPHYLAXIS
     Dosage: 4250 IU (INTERNATIONAL UNIT)
     Route: 058
     Dates: start: 20191217, end: 20191228
  3. CIMETIDINE IN SODIUM CHLORIDE [Concomitant]
     Indication: GASTROOESOPHAGEAL REFLUX PROPHYLAXIS
     Dosage: 100 MILLILITER
     Route: 041
     Dates: start: 20191219, end: 20191231
  4. ALBUTEROL SULFATE. [Concomitant]
     Active Substance: ALBUTEROL SULFATE
     Indication: PRODUCTIVE COUGH
     Dosage: 20 MILLIGRAM
     Route: 065
     Dates: start: 20191220, end: 20191231
  5. BUCINNAZINE HYDROCHLORIDE [Concomitant]
     Indication: PAIN
     Dosage: 90 MILLIGRAM
     Route: 048
     Dates: start: 20191219, end: 20191231
  6. ABRAXANE [Suspect]
     Active Substance: PACLITAXEL
     Dosage: 152 MILLIGRAM
     Route: 041
     Dates: start: 20191219, end: 20191226
  7. SHENG XUE XIAO BAN [Concomitant]
     Indication: PLATELET COUNT INCREASED
     Dosage: 5.4 GRAM
     Route: 048
     Dates: start: 20191220, end: 20191231
  8. POTASSIUM CHLORIDE. [Concomitant]
     Active Substance: POTASSIUM CHLORIDE
     Indication: BLOOD POTASSIUM INCREASED
     Dosage: .75 GRAM
     Route: 065
     Dates: start: 20191231, end: 20191231
  9. MEGESTROL ACETATE. [Concomitant]
     Active Substance: MEGESTROL ACETATE
     Indication: INCREASED APPETITE
     Dosage: 240 MILLIGRAM
     Route: 048
     Dates: start: 20191220, end: 20191226
  10. CONCENTRATED SODIUM CHLORIDE [Concomitant]
     Active Substance: SODIUM CHLORIDE
     Indication: PNEUMONIA
     Dosage: .75 GRAM
     Route: 041
     Dates: start: 20191223, end: 20191225
  11. DI YU SHENG BAI [Concomitant]
     Indication: PROPHYLAXIS
     Dosage: 1.2 GRAM
     Route: 065
     Dates: start: 20191220, end: 20191231
  12. COMPOUND GLYCYRRHIZIN [Concomitant]
     Indication: LIVER FUNCTION TEST ABNORMAL
     Dosage: 60 MILLILITER
     Route: 041
     Dates: start: 20191219, end: 20191231
  13. CARBOPLATIN. [Suspect]
     Active Substance: CARBOPLATIN
     Indication: NON-SMALL CELL LUNG CANCER
     Dosage: 412 MILLIGRAM
     Route: 041
     Dates: start: 20191120
  14. SERPLULIMAB. [Suspect]
     Active Substance: SERPLULIMAB
     Indication: NON-SMALL CELL LUNG CANCER
     Dosage: 234 MILLIGRAM
     Route: 041
     Dates: start: 20191120, end: 20191120
  15. SERPLULIMAB. [Suspect]
     Active Substance: SERPLULIMAB
     Dosage: 234 MILLIGRAM
     Route: 041
     Dates: start: 20191219, end: 20191219
  16. LAMOTRIGINE. [Concomitant]
     Active Substance: LAMOTRIGINE
     Indication: ANALGESIC THERAPY
     Dosage: 90 MILLIGRAM
     Route: 065
     Dates: start: 20191226, end: 20191231
  17. ABRAXANE [Suspect]
     Active Substance: PACLITAXEL
     Indication: NON-SMALL CELL LUNG CANCER
     Dosage: 155 MILLIGRAM
     Route: 041
     Dates: start: 20191120, end: 20191120
  18. VITAMIN B6 [Concomitant]
     Active Substance: PYRIDOXINE HYDROCHLORIDE
     Indication: PROPHYLAXIS OF NAUSEA AND VOMITING
     Dosage: .1 GRAM
     Route: 048
     Dates: start: 20191219, end: 20191231

REACTIONS (1)
  - Pneumonia [Fatal]

NARRATIVE: CASE EVENT DATE: 20191231
